FAERS Safety Report 7860599-X (Version None)
Quarter: 2011Q4

REPORT INFORMATION
  Report Type: 
  Country: None (occurrence: None)
  Receive Date: 20111027
  Receipt Date: 20111021
  Transmission Date: 20120403
  Serious: Yes (Hospitalization)
  Sender: FDA-Public Use
  Company Number: US-ACTELION-A-US2011-49537

PATIENT

DRUGS (4)
  1. TRACLEER [Suspect]
     Indication: PULMONARY ARTERIAL HYPERTENSION
     Dosage: UNK
     Route: 048
     Dates: start: 20080916
  2. COUMADIN [Concomitant]
  3. ADCIRCA [Concomitant]
  4. REVATIO [Concomitant]

REACTIONS (2)
  - CATHETER SITE INFECTION [None]
  - CATHETER SITE DISCHARGE [None]
